FAERS Safety Report 6573068-4 (Version None)
Quarter: 2010Q1

REPORT INFORMATION
  Report Type: 
  Country: None (occurrence: None)
  Receive Date: 20100208
  Receipt Date: 20100201
  Transmission Date: 20100710
  Serious: Yes (Life-Threatening)
  Sender: FDA-Public Use
  Company Number: US-BAYER-201013035NA

PATIENT
  Sex: Female

DRUGS (3)
  1. YAZ [Suspect]
     Indication: DRUG USE FOR UNKNOWN INDICATION
     Dosage: PRESCRIBED IN APPROXIMATELY JUNE-2008
  2. YASMIN [Suspect]
     Indication: DRUG USE FOR UNKNOWN INDICATION
     Dosage: PRESCRIBED IN APPROXIMATELY JUNE-2008
     Route: 048
  3. OCELLA [Suspect]
     Indication: DRUG USE FOR UNKNOWN INDICATION
     Dosage: PRESCRIBED IN APPROXIMATELY JUNE-2008

REACTIONS (1)
  - DEEP VEIN THROMBOSIS [None]
